FAERS Safety Report 10189582 (Version 2)
Quarter: 2014Q3

REPORT INFORMATION
  Report Type: Spontaneous
  Country: US (occurrence: US)
  Receive Date: 20140522
  Receipt Date: 20140718
  Transmission Date: 20150326
  Serious: Yes (Other)
  Sender: FDA-Public Use
  Company Number: US-GLAXOSMITHKLINE-A1073479A

PATIENT
  Age: 69 Year
  Sex: Male
  Weight: 130.9 kg

DRUGS (3)
  1. ALBUTEROL NEBULIZER [Concomitant]
     Active Substance: ALBUTEROL
  2. SPIRIVA [Concomitant]
     Active Substance: TIOTROPIUM BROMIDE MONOHYDRATE
  3. BREO ELLIPTA [Suspect]
     Active Substance: FLUTICASONE FUROATE\VILANTEROL TRIFENATATE
     Indication: CHRONIC OBSTRUCTIVE PULMONARY DISEASE
     Route: 055

REACTIONS (4)
  - Pneumonia [Recovered/Resolved]
  - Drug ineffective [Recovered/Resolved]
  - Dyspnoea [Recovered/Resolved]
  - Lung disorder [Recovered/Resolved]

NARRATIVE: CASE EVENT DATE: 20131227
